FAERS Safety Report 6731822-X (Version None)
Quarter: 2010Q2

REPORT INFORMATION
  Report Type: 
  Country: None (occurrence: None)
  Receive Date: 20100519
  Receipt Date: 20100506
  Transmission Date: 20101027
  Serious: Yes (Other)
  Sender: FDA-Public Use
  Company Number: PHHY2010BR29403

PATIENT
  Age: 39 Year
  Sex: Female
  Weight: 49 kg

DRUGS (5)
  1. RITALIN LA [Suspect]
     Indication: ATTENTION DEFICIT/HYPERACTIVITY DISORDER
     Dosage: 40 MG, BID
     Route: 048
     Dates: start: 20100101
  2. RITALIN LA [Suspect]
     Dosage: 30 MG DAILY
     Route: 048
  3. TOPIRAMATE [Concomitant]
     Indication: DRUG DEPENDENCE
     Dosage: 1 DF, BID (MORNING AND NIGHT)
  4. PONDERA [Concomitant]
     Indication: DRUG DEPENDENCE
     Dosage: 1 TABLET DAILY
  5. PONDERA [Concomitant]
     Indication: ANXIETY

REACTIONS (1)
  - DRUG DEPENDENCE [None]
